FAERS Safety Report 15228382 (Version 4)
Quarter: 2019Q1

REPORT INFORMATION
  Report Type: Spontaneous
  Country: US (occurrence: US)
  Receive Date: 20180801
  Receipt Date: 20190204
  Transmission Date: 20190417
  Serious: Yes (Hospitalization)
  Sender: FDA-Public Use
  Company Number: US-ACTELION-A-NJ2018-176209

PATIENT
  Age: 48 Year
  Sex: Female

DRUGS (1)
  1. OPSUMIT [Suspect]
     Active Substance: MACITENTAN
     Indication: PULMONARY ARTERIAL HYPERTENSION
     Dosage: 10 MG, QD
     Route: 048
     Dates: start: 20170525

REACTIONS (6)
  - Product dose omission [Unknown]
  - Bronchitis [Unknown]
  - Dyspnoea [Unknown]
  - Malaise [Unknown]
  - Hospitalisation [Unknown]
  - Pneumonia [Unknown]
